FAERS Safety Report 4701732-8 (Version None)
Quarter: 2005Q2

REPORT INFORMATION
  Report Type: 
  Country: None (occurrence: None)
  Receive Date: 20050627
  Receipt Date: 20050614
  Transmission Date: 20051028
  Serious: Yes (Hospitalization)
  Sender: FDA-Public Use
  Company Number: 430006E05GBR

PATIENT
  Age: 64 Year
  Sex: Female

DRUGS (1)
  1. NOVANTRONE [Suspect]
     Indication: LYMPHOMA

REACTIONS (8)
  - ANOREXIA [None]
  - DIARRHOEA [None]
  - GENERALISED ERYTHEMA [None]
  - MUCOSAL INFLAMMATION [None]
  - NAUSEA [None]
  - NEUTROPENIC SEPSIS [None]
  - RENAL IMPAIRMENT [None]
  - VOMITING [None]
